FAERS Safety Report 17305764 (Version 1)
Quarter: 2020Q1

REPORT INFORMATION
  Report Type: Spontaneous
  Country: US (occurrence: US)
  Receive Date: 20200123
  Receipt Date: 20200123
  Transmission Date: 20200409
  Serious: Yes (Life-Threatening, Hospitalization, Other)
  Sender: FDA-Public Use
  Company Number: US-HIKMA PHARMACEUTICALS USA INC.-US-H14001-20-50429

PATIENT
  Age: 50 Year
  Sex: Male

DRUGS (1)
  1. HEPARIN [Suspect]
     Active Substance: HEPARIN SODIUM
     Indication: PULMONARY EMBOLISM
     Route: 065

REACTIONS (3)
  - Thrombosis [Recovered/Resolved]
  - Cardiac arrest [Recovered/Resolved]
  - Heparin-induced thrombocytopenia [Recovered/Resolved]
